FAERS Safety Report 8335497-8 (Version None)
Quarter: 2012Q2

REPORT INFORMATION
  Report Type: 
  Country: None (occurrence: None)
  Receive Date: 20120503
  Receipt Date: 20120420
  Transmission Date: 20120825
  Serious: Yes (Other)
  Sender: FDA-Public Use
  Company Number: US-BAXTER-2012BAX003529

PATIENT
  Age: 39 Year
  Sex: Female

DRUGS (1)
  1. SUPRANE [Suspect]
     Dates: start: 20120417

REACTIONS (1)
  - BRONCHOSPASM [None]
